FAERS Safety Report 6218802-8 (Version None)
Quarter: 2009Q2

REPORT INFORMATION
  Report Type: 
  Country: None (occurrence: None)
  Receive Date: 20090608
  Receipt Date: 20090525
  Transmission Date: 20091009
  Serious: Yes (Death, Other)
  Sender: FDA-Public Use
  Company Number: SE-ELI_LILLY_AND_COMPANY-SE200906000651

PATIENT
  Age: 50 Year
  Sex: Male

DRUGS (7)
  1. ZYPREXA [Suspect]
     Indication: BIPOLAR I DISORDER
     Dosage: 10 MG, 2/D
     Route: 048
     Dates: start: 20031107, end: 20031115
  2. HEMINEVRIN [Concomitant]
     Dosage: 300 MG, DAILY (1/D)
     Route: 048
     Dates: start: 20031105, end: 20031116
  3. LITHIUM CARBONATE [Concomitant]
     Indication: BIPOLAR I DISORDER
     Dosage: 42 MG, UNK
     Route: 048
     Dates: start: 20031105, end: 20031115
  4. STESOLID NOVUM [Concomitant]
     Indication: BIPOLAR I DISORDER
     Dosage: 2 ML, UNK
     Route: 030
     Dates: start: 20031105, end: 20031113
  5. DISIPAL [Concomitant]
     Dosage: 50 MG, AS NEEDED
  6. CISORDINOL ACUTARD [Concomitant]
     Indication: DEPRESSION
     Dosage: 200 MG, UNK
     Route: 030
     Dates: start: 20031105, end: 20031113
  7. HALDOL [Concomitant]
     Indication: BIPOLAR I DISORDER
     Dosage: 2 ML, UNK
     Route: 030
     Dates: start: 20031105, end: 20031113

REACTIONS (11)
  - ALANINE AMINOTRANSFERASE INCREASED [None]
  - ASPARTATE AMINOTRANSFERASE INCREASED [None]
  - CARDIOMYOPATHY [None]
  - GAMMA-GLUTAMYLTRANSFERASE INCREASED [None]
  - NERVOUSNESS [None]
  - PULMONARY OEDEMA [None]
  - SLEEP DISORDER [None]
  - SNORING [None]
  - SOMNOLENCE [None]
  - SUDDEN DEATH [None]
  - THERAPEUTIC AGENT TOXICITY [None]
